FAERS Safety Report 20503323 (Version 1)
Quarter: 2022Q1

REPORT INFORMATION
  Report Type: Spontaneous
  Country: US (occurrence: None)
  Receive Date: 20220222
  Receipt Date: 20220222
  Transmission Date: 20220424
  Serious: Yes (Death)
  Sender: FDA-Public Use
  Company Number: None

PATIENT
  Age: 84 Year
  Sex: Female

DRUGS (3)
  1. ESBRIET [Suspect]
     Active Substance: PIRFENIDONE
     Indication: Idiopathic pulmonary fibrosis
     Dosage: RX1: DAYS 1 THROUGH 7 - TAKE 1 TABLET BY MOUTH THREE TIMES DAILY WITH MEALS. DAYS 8 THROUGH 14 - TAK
     Route: 048
     Dates: start: 20170816
  2. ESBRIET [Concomitant]
     Active Substance: PIRFENIDONE
  3. OFEV [Concomitant]
     Active Substance: NINTEDANIB

REACTIONS (1)
  - Death [None]

NARRATIVE: CASE EVENT DATE: 20220216
